FAERS Safety Report 6506985-1 (Version None)
Quarter: 2009Q4

REPORT INFORMATION
  Report Type: 
  Country: None (occurrence: None)
  Receive Date: 20091127
  Receipt Date: 20090721
  Transmission Date: 20100525
  Serious: Yes (Hospitalization, Other)
  Sender: FDA-Public Use
  Company Number: US200906003040

PATIENT
  Age: 51 Year
  Sex: Female
  Weight: 90.7 kg

DRUGS (19)
  1. BYETTA [Suspect]
     Indication: TYPE 2 DIABETES MELLITUS
     Dosage: 5 UG, 2/D, SUBCUTANEOUS
     Route: 058
     Dates: start: 20080101
  2. ACTOS [Concomitant]
  3. METFORMIN HCL [Concomitant]
  4. GLIPIZIDE [Concomitant]
  5. ASPIRIN [Concomitant]
  6. CLONIDINE [Concomitant]
  7. CELLCEPT [Concomitant]
  8. PREDNISONE [Concomitant]
  9. CYCLOSPORINE [Concomitant]
  10. FLUCONAZOLE [Concomitant]
  11. NORCO [Concomitant]
  12. LEVOXYL [Concomitant]
  13. ABILIFY [Concomitant]
  14. FOLIC ACID [Concomitant]
  15. MICARDIS [Concomitant]
  16. TOPROL-XL [Concomitant]
  17. CLARINEX [Concomitant]
  18. OMEPRAZOLE [Concomitant]
  19. LIPITOR [Concomitant]

REACTIONS (8)
  - ARTHRITIS [None]
  - BACK PAIN [None]
  - DEHYDRATION [None]
  - HYPOGLYCAEMIA [None]
  - HYPOTENSION [None]
  - MEMORY IMPAIRMENT [None]
  - NECK PAIN [None]
  - OFF LABEL USE [None]
